FAERS Safety Report 25526666 (Version 1)
Quarter: 2025Q3

REPORT INFORMATION
  Report Type: Spontaneous
  Country: CN (occurrence: CN)
  Receive Date: 20250707
  Receipt Date: 20250707
  Transmission Date: 20251021
  Serious: Yes (Other)
  Sender: PFIZER
  Company Number: CN-PFIZER INC-PV202500080094

PATIENT
  Age: 10 Year
  Sex: Female
  Weight: 33 kg

DRUGS (5)
  1. MEDROL [Suspect]
     Active Substance: METHYLPREDNISOLONE
     Indication: Systemic lupus erythematosus
     Dosage: 20 MG, 2X/DAY
     Route: 048
     Dates: start: 20241111, end: 20241204
  2. MEDROL [Suspect]
     Active Substance: METHYLPREDNISOLONE
     Dosage: 20MG IN THE MORNING AND 16MG AT NIGHT
     Route: 048
     Dates: start: 20241205, end: 20241219
  3. MEDROL [Suspect]
     Active Substance: METHYLPREDNISOLONE
     Dosage: 16 MG, 2X/DAY
     Route: 048
     Dates: start: 20241220, end: 20250108
  4. PREDNISONE ACETATE [Suspect]
     Active Substance: PREDNISONE ACETATE
     Indication: Systemic lupus erythematosus
     Dosage: 25 MG, 1X/DAY, REDUCE ONE TABLET APPROXIMATELY EVERY TWO WEEKS THEREAFTER
     Route: 048
     Dates: start: 20250109, end: 20250519
  5. PREDNISONE ACETATE [Suspect]
     Active Substance: PREDNISONE ACETATE
     Dosage: 5 MG, 1X/DAY
     Route: 048
     Dates: start: 20250520, end: 20250701

REACTIONS (2)
  - Osteoporosis [Recovering/Resolving]
  - Back pain [Recovering/Resolving]

NARRATIVE: CASE EVENT DATE: 20250520
